FAERS Safety Report 7589416-2 (Version None)
Quarter: 2011Q3

REPORT INFORMATION
  Report Type: 
  Country: None (occurrence: None)
  Receive Date: 20110705
  Receipt Date: 20110627
  Transmission Date: 20111222
  Serious: Yes (Life-Threatening, Hospitalization)
  Sender: FDA-Public Use
  Company Number: US-EISAI INC-E7389-01100-CLI-US

PATIENT
  Sex: Female
  Weight: 57 kg

DRUGS (1)
  1. EPIRUBICIN HYDROCHLORIDE [Suspect]
     Route: 041
     Dates: start: 20101015

REACTIONS (2)
  - PNEUMONIA [None]
  - NEUTROPENIA [None]
